FAERS Safety Report 10538539 (Version 2)
Quarter: 2014Q4

REPORT INFORMATION
  Report Type: Spontaneous
  Country: US (occurrence: US)
  Receive Date: 20141023
  Receipt Date: 20141023
  Transmission Date: 20150529
  Serious: Yes (Hospitalization, Other)
  Sender: FDA-Public Use
  Company Number: US-GLAXOSMITHKLINE-A0865107A

PATIENT
  Age: 55 Year
  Sex: Female

DRUGS (1)
  1. AVANDIA [Suspect]
     Active Substance: ROSIGLITAZONE MALEATE
     Indication: TYPE 2 DIABETES MELLITUS
     Dosage: 4 MG, QD
     Dates: start: 2002, end: 2007

REACTIONS (4)
  - Transient ischaemic attack [Unknown]
  - Encephalomalacia [Unknown]
  - Cerebrovascular accident [Not Recovered/Not Resolved]
  - Brain stem infarction [Unknown]

NARRATIVE: CASE EVENT DATE: 20060213
